FAERS Safety Report 8262915-6 (Version None)
Quarter: 2012Q2

REPORT INFORMATION
  Report Type: 
  Country: None (occurrence: None)
  Receive Date: 20120405
  Receipt Date: 20120326
  Transmission Date: 20120825
  Serious: Yes (Hospitalization)
  Sender: FDA-Public Use
  Company Number: FR-GLAXOSMITHKLINE-B0790735A

PATIENT
  Age: 51 Year
  Sex: Female

DRUGS (9)
  1. PAROXETINE HYDROCHLORIDE [Concomitant]
     Indication: PSYCHOTIC DISORDER
  2. ZOLOFT [Concomitant]
  3. ARIXTRA [Suspect]
     Indication: DEEP VEIN THROMBOSIS
     Dosage: 7.5MG PER DAY
     Route: 058
     Dates: start: 20120304, end: 20120310
  4. ASPIRIN [Suspect]
     Indication: PROPHYLAXIS
     Dosage: 75MG PER DAY
     Route: 048
  5. DEPAKOTE [Concomitant]
     Indication: PSYCHOTIC DISORDER
  6. RISPERDAL [Concomitant]
  7. OXAZEPAM [Concomitant]
     Indication: PSYCHOTIC DISORDER
  8. SULFARLEM [Concomitant]
  9. ZOLPIDEM TARTRATE [Concomitant]
     Indication: PSYCHOTIC DISORDER

REACTIONS (2)
  - MUSCLE HAEMORRHAGE [None]
  - OFF LABEL USE [None]
